FAERS Safety Report 10154136 (Version 1)
Quarter: 2014Q2

REPORT INFORMATION
  Report Type: Spontaneous
  Country: US (occurrence: None)
  Receive Date: 20140505
  Receipt Date: 20140505
  Transmission Date: 20141212
  Serious: Yes (Hospitalization)
  Sender: FDA-Public Use
  Company Number: None

PATIENT
  Age: 55 Year
  Sex: Male
  Weight: 83 kg

DRUGS (1)
  1. INTRON A [Suspect]
     Dates: end: 20130807

REACTIONS (6)
  - Dehydration [None]
  - Asthenia [None]
  - Hypotension [None]
  - Fatigue [None]
  - Leukopenia [None]
  - Pyrexia [None]
